FAERS Safety Report 8082325-4 (Version None)
Quarter: 2012Q1

REPORT INFORMATION
  Report Type: 
  Country: None (occurrence: None)
  Receive Date: 20120127
  Receipt Date: 20110215
  Transmission Date: 20120608
  Serious: No
  Sender: FDA-Public Use
  Company Number: US-ABBOTT-11P-163-0705878-00

PATIENT
  Sex: Male
  Weight: 144.37 kg

DRUGS (1)
  1. HUMIRA [Suspect]
     Indication: CROHN'S DISEASE
     Dates: start: 20100818

REACTIONS (7)
  - HAEMATOCHEZIA [None]
  - CROHN'S DISEASE [None]
  - MUCOUS STOOLS [None]
  - ANAL FISTULA INFECTION [None]
  - PAIN [None]
  - ANAL FISTULA [None]
  - ABDOMINAL PAIN [None]
